FAERS Safety Report 21236678 (Version 5)
Quarter: 2023Q1

REPORT INFORMATION
  Report Type: Spontaneous
  Country: US (occurrence: US)
  Receive Date: 20220822
  Receipt Date: 20230203
  Transmission Date: 20230418
  Serious: No
  Sender: FDA-Public Use
  Company Number: US-SA-SAC20220819001227

PATIENT
  Age: 51 Year
  Sex: Female

DRUGS (3)
  1. DUPIXENT [Suspect]
     Active Substance: DUPILUMAB
     Indication: Dermatitis atopic
     Dosage: 300 MG, QOW
     Route: 058
     Dates: start: 20220406
  2. DUPIXENT [Suspect]
     Active Substance: DUPILUMAB
     Indication: Neoplasm skin
     Dosage: 600 MG, 1X
     Route: 058
     Dates: start: 202206, end: 202206
  3. DUPIXENT [Suspect]
     Active Substance: DUPILUMAB
     Indication: Eczema
     Dosage: 300 MG, QOW
     Route: 058

REACTIONS (9)
  - Osteoarthritis [Unknown]
  - Alopecia [Unknown]
  - Arthralgia [Unknown]
  - Dermatitis atopic [Unknown]
  - Rash macular [Unknown]
  - Rash [Unknown]
  - Injection site pain [Unknown]
  - Rash vesicular [Unknown]
  - Product use in unapproved indication [Unknown]

NARRATIVE: CASE EVENT DATE: 20220101
